FAERS Safety Report 12501778 (Version 3)
Quarter: 2019Q3

REPORT INFORMATION
  Report Type: Report from Study
  Country: None (occurrence: PR)
  Receive Date: 20160627
  Receipt Date: 20190703
  Transmission Date: 20191004
  Serious: Yes (Other)
  Sender: FDA-Public Use
  Company Number: PR-ABBVIE-12P-131-0979324-00

PATIENT
  Age: 69 Year
  Sex: Female
  Weight: 54.48 kg

DRUGS (9)
  1. DILTIAZEM. [Concomitant]
     Active Substance: DILTIAZEM
     Indication: HYPERTENSION
     Route: 048
  2. NEXIUM [Concomitant]
     Active Substance: ESOMEPRAZOLE MAGNESIUM
     Indication: GASTRIC DISORDER
     Dosage: 1 CAPSULE DAILY
     Route: 048
  3. XALATAN [Concomitant]
     Active Substance: LATANOPROST
     Indication: GLAUCOMA
     Dosage: EACH EYE
     Route: 061
  4. PREVACID [Concomitant]
     Active Substance: LANSOPRAZOLE
     Indication: GASTRITIS
     Route: 048
  5. CARVEDILOL. [Concomitant]
     Active Substance: CARVEDILOL
     Indication: CARDIAC DISORDER
     Route: 048
  6. ALPHAGAN P [Concomitant]
     Active Substance: BRIMONIDINE TARTRATE
     Indication: GLAUCOMA
     Dosage: EACH EYE
     Route: 061
  7. HUMIRA [Suspect]
     Active Substance: ADALIMUMAB
     Indication: CROHN^S DISEASE
     Route: 058
     Dates: start: 2008, end: 201906
  8. HUMIRA [Suspect]
     Active Substance: ADALIMUMAB
     Route: 058
  9. AZOFT [Concomitant]
     Indication: GLAUCOMA
     Dosage: EACH EYE
     Route: 061

REACTIONS (9)
  - Bradycardia [Recovered/Resolved]
  - Flatulence [Recovering/Resolving]
  - Pacemaker generated arrhythmia [Recovered/Resolved]
  - Palpitations [Recovering/Resolving]
  - Insomnia [Not Recovered/Not Resolved]
  - Psoriasis [Not Recovered/Not Resolved]
  - Onychomycosis [Not Recovered/Not Resolved]
  - Gastrointestinal pain [Recovering/Resolving]
  - Device deployment issue [Unknown]

NARRATIVE: CASE EVENT DATE: 2008
